FAERS Safety Report 13064553 (Version 1)
Quarter: 2016Q4

REPORT INFORMATION
  Report Type: Spontaneous
  Country: DE (occurrence: DE)
  Receive Date: 20161227
  Receipt Date: 20161227
  Transmission Date: 20170207
  Serious: Yes (Hospitalization)
  Sender: FDA-Public Use
  Company Number: DE-UNICHEM LABORATORIES LIMITED-UCM201612-000296

PATIENT
  Age: 81 Year
  Sex: Female

DRUGS (6)
  1. CEFUROXIME. [Concomitant]
     Active Substance: CEFUROXIME
  2. VENLAFAXINE [Suspect]
     Active Substance: VENLAFAXINE HYDROCHLORIDE
  3. METRONIDAZOLE. [Suspect]
     Active Substance: METRONIDAZOLE
  4. RISPERIDONE. [Suspect]
     Active Substance: RISPERIDONE
  5. RISPERIDONE. [Suspect]
     Active Substance: RISPERIDONE
  6. VENLAFAXINE [Suspect]
     Active Substance: VENLAFAXINE HYDROCHLORIDE

REACTIONS (5)
  - Dizziness [Unknown]
  - Drug interaction [Unknown]
  - Orthostatic hypotension [Unknown]
  - Hyponatraemia [Unknown]
  - Headache [Unknown]
